FAERS Safety Report 4677585-3 (Version None)
Quarter: 2005Q2

REPORT INFORMATION
  Report Type: 
  Country: None (occurrence: None)
  Receive Date: 20050527
  Receipt Date: 20050527
  Transmission Date: 20051028
  Serious: No
  Sender: FDA-Public Use
  Company Number: None

PATIENT
  Sex: Male
  Weight: 77 kg

DRUGS (2)
  1. TEMOZOLOMIDE [Suspect]
     Indication: GLIOBLASTOMA MULTIFORME
     Dosage: 140 MG EVERY DAY DURING RT.
     Dates: start: 20050421
  2. RADIATION [Suspect]
     Dosage: 2.0 GYX30 FRACTIONS

REACTIONS (1)
  - DEEP VEIN THROMBOSIS [None]
